FAERS Safety Report 22359721 (Version 1)
Quarter: 2023Q2

REPORT INFORMATION
  Report Type: Spontaneous
  Country: US (occurrence: None)
  Receive Date: 20230523
  Receipt Date: 20230523
  Transmission Date: 20230722
  Serious: Yes (Death)
  Sender: FDA-Public Use
  Company Number: None

PATIENT
  Age: 82 Year
  Sex: Male

DRUGS (21)
  1. CYCLOPHOSPHAMIDE [Suspect]
     Active Substance: CYCLOPHOSPHAMIDE
     Indication: Plasma cell myeloma
     Dosage: OTHER FREQUENCY : D 1 8, 15, 22;?
     Route: 048
  2. TRAMADOL [Concomitant]
     Active Substance: TRAMADOL
  3. STIOLTO RESPIMAT [Concomitant]
     Active Substance: OLODATEROL HYDROCHLORIDE\TIOTROPIUM BROMIDE MONOHYDRATE
  4. FLOMAX [Concomitant]
     Active Substance: TAMSULOSIN HYDROCHLORIDE
  5. SUCRALFATE [Concomitant]
     Active Substance: SUCRALFATE
  6. DOCUSATE SODIUM\SENNOSIDES [Concomitant]
     Active Substance: DOCUSATE SODIUM\SENNOSIDES
  7. PRAVASTATIN [Concomitant]
     Active Substance: PRAVASTATIN
  8. MIRALAX [Concomitant]
     Active Substance: POLYETHYLENE GLYCOL 3350
  9. Pantroprazole [Concomitant]
  10. NICOTINE [Concomitant]
     Active Substance: NICOTINE
  11. METOPROLOL [Concomitant]
     Active Substance: METOPROLOL
  12. MELATONIN [Concomitant]
     Active Substance: MELATONIN
  13. LIDOCAINE PATCH [Concomitant]
     Active Substance: LIDOCAINE
  14. GABAPENTIN [Concomitant]
     Active Substance: GABAPENTIN
  15. LASIX [Concomitant]
     Active Substance: FUROSEMIDE
  16. VOLTAREN [Concomitant]
     Active Substance: DICLOFENAC SODIUM
  17. VITAMIN D3 [Concomitant]
     Active Substance: CHOLECALCIFEROL
  18. ZYLOPRIM [Concomitant]
     Active Substance: ALLOPURINOL
  19. ALBUTEROL SULFATE [Concomitant]
     Active Substance: ALBUTEROL SULFATE
  20. ZOVIRAX [Concomitant]
     Active Substance: ACYCLOVIR
  21. ACETAMINOPHEN [Concomitant]
     Active Substance: ACETAMINOPHEN

REACTIONS (1)
  - Death [None]

NARRATIVE: CASE EVENT DATE: 20230522
